FAERS Safety Report 25829217 (Version 2)
Quarter: 2025Q4

REPORT INFORMATION
  Report Type: Report from Study
  Country: US (occurrence: US)
  Receive Date: 20250922
  Receipt Date: 20251022
  Transmission Date: 20260118
  Serious: Yes (Hospitalization, Disabling)
  Sender: BOEHRINGER INGELHEIM
  Company Number: US-BoehringerIngelheim-2025-BI-091548

PATIENT
  Age: 77 Year
  Sex: Male
  Weight: 122.60 kg

DRUGS (20)
  1. OFEV [Suspect]
     Active Substance: NINTEDANIB
     Indication: Idiopathic pulmonary fibrosis
     Dates: start: 20250714, end: 20250904
  2. ELIQUIS [Concomitant]
     Active Substance: APIXABAN
  3. LASIX [Concomitant]
     Active Substance: FUROSEMIDE
  4. APIXABAN [Concomitant]
     Active Substance: APIXABAN
  5. ASPIRIN [Concomitant]
     Active Substance: ASPIRIN
  6. SIMVASTATIN [Concomitant]
     Active Substance: SIMVASTATIN
  7. TAMSULOSIN [Concomitant]
     Active Substance: TAMSULOSIN
  8. FUROSEMIDE [Concomitant]
     Active Substance: FUROSEMIDE
  9. GABAPENTIN [Concomitant]
     Active Substance: GABAPENTIN
  10. LEVOTHYROXINE [Concomitant]
     Active Substance: LEVOTHYROXINE
  11. MEMANTINE [Concomitant]
     Active Substance: MEMANTINE
  12. METFORMIN [Concomitant]
     Active Substance: METFORMIN HYDROCHLORIDE
  13. LACTULOSE [Concomitant]
     Active Substance: LACTULOSE
  14. RIFAXIMIN [Concomitant]
     Active Substance: RIFAXIMIN
  15. ALBUTEROL [Concomitant]
     Active Substance: ALBUTEROL
  16. PULMICORT TURBUHALER [Concomitant]
     Active Substance: BUDESONIDE
  17. IPRATROPIUM [Concomitant]
     Active Substance: IPRATROPIUM
     Dosage: NEB PRN
  18. acetylcysteine 100 mg/ml (10%) [Concomitant]
     Dates: start: 20250923
  19. Ipratroplum 0.5  mg-albuterol 3 mg (2.5 mg base)/3 mL nebulizatlon sol [Concomitant]
  20. Spironolactone 100 mg tablet [Concomitant]

REACTIONS (9)
  - Asthenia [Not Recovered/Not Resolved]
  - Infection [Unknown]
  - Ammonia increased [Unknown]
  - Drug intolerance [Unknown]
  - Fatigue [Unknown]
  - Confusional state [Not Recovered/Not Resolved]
  - Oxygen saturation decreased [Not Recovered/Not Resolved]
  - Gait inability [Not Recovered/Not Resolved]
  - Weight increased [Unknown]

NARRATIVE: CASE EVENT DATE: 20250905
